FAERS Safety Report 22127321 (Version 1)
Quarter: 2023Q1

REPORT INFORMATION
  Report Type: Spontaneous
  Country: US (occurrence: US)
  Receive Date: 20230322
  Receipt Date: 20230322
  Transmission Date: 20230417
  Serious: No
  Sender: FDA-Public Use
  Company Number: US-ALLERGAN-2301695US

PATIENT
  Sex: Female

DRUGS (1)
  1. KYBELLA [Suspect]
     Active Substance: DEOXYCHOLIC ACID
     Indication: Lipolysis procedure
     Dosage: UNK, SINGLE
     Route: 058
     Dates: start: 20230119, end: 20230119

REACTIONS (5)
  - Pain [Unknown]
  - Swelling [Unknown]
  - Skin discolouration [Unknown]
  - Product administered at inappropriate site [Unknown]
  - Device use confusion [Unknown]

NARRATIVE: CASE EVENT DATE: 20230101
